FAERS Safety Report 7770860-5 (Version None)
Quarter: 2011Q3

REPORT INFORMATION
  Report Type: 
  Country: None (occurrence: None)
  Receive Date: 20110922
  Receipt Date: 20110509
  Transmission Date: 20111222
  Serious: No
  Sender: FDA-Public Use
  Company Number: US-ASTRAZENECA-2011SE20373

PATIENT
  Age: 30 Year
  Sex: Female
  Weight: 90.7 kg

DRUGS (4)
  1. AMBIEN [Concomitant]
     Indication: SLEEP DISORDER
  2. SEROQUEL XR [Suspect]
     Indication: BIPOLAR DISORDER
     Route: 048
  3. XANEX [Concomitant]
     Indication: ANXIETY
  4. CELEXA [Concomitant]
     Indication: DEPRESSION

REACTIONS (6)
  - DRUG WITHDRAWAL SYNDROME [None]
  - HALLUCINATION, AUDITORY [None]
  - INSOMNIA [None]
  - DRUG DOSE OMISSION [None]
  - AMNESIA [None]
  - MANIA [None]
